FAERS Safety Report 7112619-8 (Version None)
Quarter: 2010Q4

REPORT INFORMATION
  Report Type: 
  Country: None (occurrence: None)
  Receive Date: 20101119
  Receipt Date: 20101116
  Transmission Date: 20110411
  Serious: Yes (Hospitalization)
  Sender: FDA-Public Use
  Company Number: GB-ROXANE LABORATORIES, INC.-2010-RO-01506RO

PATIENT
  Age: 44 Year
  Sex: Female

DRUGS (1)
  1. BALSALAZIDE DISODIUM [Suspect]
     Indication: COLITIS ULCERATIVE

REACTIONS (1)
  - EOSINOPHILIC PNEUMONIA [None]
